FAERS Safety Report 4581230-5 (Version None)
Quarter: 2005Q1

REPORT INFORMATION
  Report Type: 
  Country: None (occurrence: None)
  Receive Date: 20050214
  Receipt Date: 20040907
  Transmission Date: 20050727
  Serious: Yes (Hospitalization, Disabling, Other)
  Sender: FDA-Public Use
  Company Number: US-GLAXOSMITHKLINE-A0524727A

PATIENT
  Age: 36 Year
  Sex: Female

DRUGS (2)
  1. LAMICTAL [Suspect]
     Indication: BIPOLAR DISORDER
     Dosage: 25MG PER DAY
     Route: 048
     Dates: start: 20040816
  2. PREDNISONE [Concomitant]
     Indication: RASH
     Route: 042
     Dates: start: 20040824, end: 20040826

REACTIONS (4)
  - PYREXIA [None]
  - RASH [None]
  - SYNCOPE [None]
  - TOOTH DISCOLOURATION [None]
